FAERS Safety Report 20854081 (Version 1)
Quarter: 2022Q2

REPORT INFORMATION
  Report Type: Spontaneous
  Country: US (occurrence: None)
  Receive Date: 20220519
  Receipt Date: 20220519
  Transmission Date: 20220721
  Serious: No
  Sender: FDA-Public Use
  Company Number: None

PATIENT

DRUGS (1)
  1. XATMEP [Suspect]
     Active Substance: METHOTREXATE

REACTIONS (2)
  - Product supply issue [None]
  - Product dispensing error [None]
